FAERS Safety Report 8206537-1 (Version None)
Quarter: 2012Q1

REPORT INFORMATION
  Report Type: 
  Country: None (occurrence: None)
  Receive Date: 20120313
  Receipt Date: 20120305
  Transmission Date: 20120608
  Serious: Yes (Disabling, Other)
  Sender: FDA-Public Use
  Company Number: FR-MERCK-1203USA00832

PATIENT
  Age: 63 Year
  Sex: Male

DRUGS (2)
  1. LEVOFLOXACIN [Suspect]
     Indication: PROSTATITIS
     Route: 048
     Dates: start: 20111020, end: 20111120
  2. NOROXIN [Suspect]
     Indication: PROSTATITIS
     Route: 048
     Dates: start: 20111124, end: 20111129

REACTIONS (2)
  - TENDON DISORDER [None]
  - TENDON PAIN [None]
